FAERS Safety Report 4357907-3 (Version None)
Quarter: 2004Q2

REPORT INFORMATION
  Report Type: 
  Country: None (occurrence: None)
  Receive Date: 20040514
  Receipt Date: 20030130
  Transmission Date: 20050107
  Serious: Yes (Other)
  Sender: FDA-Public Use
  Company Number: PHEH2003US01131

PATIENT
  Age: 81 Year
  Sex: Male

DRUGS (22)
  1. AREDIA [Suspect]
     Indication: MULTIPLE MYELOMA
     Dosage: 90 MG, QMO
     Route: 042
     Dates: start: 19960621, end: 20020513
  2. AMPICILLIN [Concomitant]
     Dosage: UNK, UNK
     Route: 042
  3. PENICILLIN G [Concomitant]
     Dosage: 250 MG, QD
  4. CARDIZEM [Concomitant]
  5. CARDURA [Concomitant]
  6. DIURETICS [Concomitant]
  7. CLINDAMYCIN HCL [Concomitant]
  8. PREDNISONE [Concomitant]
     Dosage: 80MGX7DAYS/40MGX7DAYS/Q35DAYS
     Dates: start: 19960624, end: 19970421
  9. PREDNISONE [Concomitant]
     Dosage: 30 MG BIDX4DAYS/Q28DAYS
     Dates: start: 20010504, end: 20020301
  10. DEXAMETHASONE [Concomitant]
     Indication: BRONCHITIS
     Dosage: 20 MG, Q 35 DAYS
     Dates: start: 19960624, end: 19970421
  11. DEXAMETHASONE [Concomitant]
     Dosage: 40 MG, OVER 4DAYS/Q25DAYS
  12. THALIDOMIDE [Concomitant]
     Indication: MULTIPLE MYELOMA
     Dates: start: 19990101, end: 20010401
  13. FORTAZ [Concomitant]
     Indication: PSEUDOMONAS INFECTION
     Route: 042
     Dates: start: 20001101
  14. VINCRISTINE [Concomitant]
     Dosage: 2MG Q35 DAYS
     Dates: start: 19960624, end: 19970421
  15. VINCRISTINE [Concomitant]
     Dosage: 1.6MG OVER 4 DAYS/Q25DAYS
     Route: 042
     Dates: start: 19981214, end: 19990309
  16. CARMUSTINE [Concomitant]
     Dosage: 40MG Q35DAYS
     Dates: start: 19960624, end: 19970421
  17. CYTOXAN [Concomitant]
     Dosage: 820 MG Q35DAYS
     Dates: start: 19960624, end: 19970421
  18. CYTOXAN [Concomitant]
     Dosage: 1850MG Q3-4WKS
     Dates: start: 19990805, end: 19991104
  19. MELPHALAN [Concomitant]
     Dosage: 22MG QDX4/Q35DAYS
     Dates: start: 19960624, end: 19970421
  20. MELPHALAN [Concomitant]
     Dosage: 16MG X 4DAYS/Q28DAYS
     Dates: start: 20010504, end: 20020301
  21. ZOFRAN [Concomitant]
     Dosage: 20MG /Q35DAYS
     Dates: start: 19960624, end: 19970421
  22. ADRIAMYCIN PFS [Concomitant]
     Dosage: 68MG/OVER 4DAYS/Q25DAYS
     Dates: start: 19981214, end: 19990309

REACTIONS (4)
  - OSTEOMYELITIS [None]
  - OSTEONECROSIS [None]
  - PATHOLOGICAL FRACTURE [None]
  - PSEUDOMONAS INFECTION [None]
